FAERS Safety Report 5512665-1 (Version None)
Quarter: 2007Q4

REPORT INFORMATION
  Report Type: 
  Country: None (occurrence: None)
  Receive Date: 20071108
  Receipt Date: 20071026
  Transmission Date: 20080405
  Serious: Yes (Hospitalization)
  Sender: FDA-Public Use
  Company Number: 2007SP018686

PATIENT
  Age: 46 Year
  Sex: Female
  Weight: 70.7611 kg

DRUGS (3)
  1. PEG-INTRON [Suspect]
     Indication: HEPATITIS C
     Dosage: ;QW;SC; QW;SC
     Route: 058
     Dates: start: 20070630, end: 20070801
  2. PEG-INTRON [Suspect]
     Indication: HEPATITIS C
     Dosage: ;QW;SC; QW;SC
     Route: 058
     Dates: start: 20070801
  3. RIBAVIRIN [Suspect]
     Indication: HEPATITIS C
     Dosage: 1000 MG; QD; PO
     Route: 048
     Dates: start: 20070630

REACTIONS (16)
  - ALANINE AMINOTRANSFERASE ABNORMAL [None]
  - ASCITES [None]
  - ASPARTATE AMINOTRANSFERASE ABNORMAL [None]
  - BLOOD ALBUMIN ABNORMAL [None]
  - BLOOD CALCIUM ABNORMAL [None]
  - DRUG DOSE OMISSION [None]
  - FLUID OVERLOAD [None]
  - INFLUENZA LIKE ILLNESS [None]
  - MALAISE [None]
  - OEDEMA PERIPHERAL [None]
  - PANCYTOPENIA [None]
  - PNEUMONIA [None]
  - PROTEIN TOTAL ABNORMAL [None]
  - PULMONARY OEDEMA [None]
  - WEIGHT DECREASED [None]
  - WHEEZING [None]
